FAERS Safety Report 10026890 (Version 1)
Quarter: 2014Q1

REPORT INFORMATION
  Report Type: Spontaneous
  Country: IE (occurrence: IE)
  Receive Date: 20140321
  Receipt Date: 20140321
  Transmission Date: 20141002
  Serious: Yes (Other)
  Sender: FDA-Public Use
  Company Number: IE-JNJFOC-20140309229

PATIENT
  Sex: Male

DRUGS (1)
  1. ETRAVIRINE [Suspect]
     Indication: HIV INFECTION
     Route: 065

REACTIONS (2)
  - Nervous system disorder [Unknown]
  - Hallucination [Unknown]
